FAERS Safety Report 4577904-2 (Version None)
Quarter: 2005Q1

REPORT INFORMATION
  Report Type: 
  Country: None (occurrence: None)
  Receive Date: 20050127
  Receipt Date: 20040830
  Transmission Date: 20050727
  Serious: No
  Sender: FDA-Public Use
  Company Number: USA040876910

PATIENT
  Age: 17 Year
  Sex: Female

DRUGS (2)
  1. STRATTERA [Suspect]
     Dosage: 60 MG DAY
     Dates: start: 20040801
  2. SINGULAIR (MONTELUKAST) [Concomitant]

REACTIONS (2)
  - OLIGOMENORRHOEA [None]
  - WEIGHT INCREASED [None]
